FAERS Safety Report 4740324-1 (Version None)
Quarter: 2005Q3

REPORT INFORMATION
  Report Type: 
  Country: None (occurrence: None)
  Receive Date: 20050801
  Receipt Date: 20050413
  Transmission Date: 20060218
  Serious: Yes (Hospitalization)
  Sender: FDA-Public Use
  Company Number: 05P-163-0297232-00

PATIENT
  Age: 33 Year
  Sex: Female
  Weight: 73.4827 kg

DRUGS (1)
  1. SYNTHROID [Suspect]
     Indication: HYPOTHYROIDISM
     Dosage: 75 MCG, 1 IN 1 D, PER ORAL
     Route: 048
     Dates: start: 20050401, end: 20050401

REACTIONS (3)
  - ASTHENIA [None]
  - HYPERSENSITIVITY [None]
  - RASH MACULO-PAPULAR [None]
